FAERS Safety Report 5765512-7 (Version None)
Quarter: 2008Q2

REPORT INFORMATION
  Report Type: 
  Country: None (occurrence: None)
  Receive Date: 20080611
  Receipt Date: 20080606
  Transmission Date: 20081010
  Serious: Yes (Other)
  Sender: FDA-Public Use
  Company Number: JP-ASTRAZENECA-2008AP04375

PATIENT
  Age: 79 Year
  Sex: Female

DRUGS (8)
  1. OMEPRAL [Suspect]
     Indication: REFLUX OESOPHAGITIS
     Route: 048
     Dates: start: 20080508, end: 20080519
  2. WARFARIN SODIUM [Interacting]
     Route: 048
     Dates: start: 20080508, end: 20080511
  3. WARFARIN SODIUM [Interacting]
     Route: 048
     Dates: start: 20080516, end: 20080518
  4. LASIX [Concomitant]
     Route: 048
  5. ASPIRIN [Concomitant]
     Route: 048
  6. BLOPRESS [Concomitant]
     Route: 048
  7. KIPRES [Concomitant]
     Route: 048
  8. PULMICORT TURBUHALER 200 MICRO G [Concomitant]
     Dosage: UNKNOWN NUMBER OF DIVIDED DOSES
     Route: 055

REACTIONS (2)
  - DRUG INTERACTION [None]
  - INTERNATIONAL NORMALISED RATIO INCREASED [None]
